FAERS Safety Report 8990653 (Version 1)
Quarter: 2012Q4

REPORT INFORMATION
  Report Type: 
  Country: GB (occurrence: GB)
  Receive Date: 20121228
  Receipt Date: 20121228
  Transmission Date: 20130627
  Serious: Yes (Other)
  Sender: FDA-Public Use
  Company Number: GB-MYLANLABS-2012S1025045

PATIENT
  Age: 32 Year
  Sex: Male
  Weight: 114 kg

DRUGS (2)
  1. QUETIAPINE [Suspect]
     Indication: PSYCHOTIC DISORDER
     Route: 048
     Dates: start: 200209, end: 201205
  2. OMEPRAZOLE [Concomitant]
     Indication: PRODUCT USED FOR UNKNOWN INDICATION
     Dates: start: 201109, end: 201205

REACTIONS (2)
  - Withdrawal syndrome [Not Recovered/Not Resolved]
  - Dry eye [Not Recovered/Not Resolved]
